FAERS Safety Report 19317081 (Version 1)
Quarter: 2021Q2

REPORT INFORMATION
  Report Type: Spontaneous
  Country: US (occurrence: US)
  Receive Date: 20210527
  Receipt Date: 20210527
  Transmission Date: 20210717
  Serious: No
  Sender: FDA-Public Use
  Company Number: US-PFIZER INC-2021247030

PATIENT
  Age: 94 Year
  Sex: Female
  Weight: 47.17 kg

DRUGS (1)
  1. LYRICA [Suspect]
     Active Substance: PREGABALIN
     Indication: DIABETIC NEUROPATHY
     Dosage: 100 MG, THREE TIMES A DAY (100 MG ONE CAPSULE THREE TIMES PER DAY BY MOUTH)
     Route: 048

REACTIONS (1)
  - Hypoacusis [Unknown]
